FAERS Safety Report 8859219 (Version 2)
Quarter: 2012Q4

REPORT INFORMATION
  Report Type: Spontaneous
  Country: GB (occurrence: None)
  Receive Date: 20121023
  Receipt Date: 20121123
  Transmission Date: 20130627
  Serious: Yes (Other)
  Sender: FDA-Public Use
  Company Number: HRA-CDB20120276

PATIENT
  Age: 34 Year
  Sex: Female
  Weight: 87 kg

DRUGS (2)
  1. ELLAONE [Suspect]
     Indication: CONTRACEPTION
     Dosage: 1 dosage forms (1 dosage forms, 1 in 1 d). oral
     Route: 048
     Dates: start: 20120918, end: 20120918
  2. EVRA(NORELGESTROMINE, ETHINYLESTRADIOL) [Concomitant]

REACTIONS (2)
  - Pregnancy after post coital contraception [None]
  - Mental disorder [None]
